FAERS Safety Report 17831985 (Version 1)
Quarter: 2020Q2

REPORT INFORMATION
  Report Type: Spontaneous
  Country: US (occurrence: US)
  Receive Date: 20200527
  Receipt Date: 20200527
  Transmission Date: 20200714
  Serious: No
  Sender: FDA-Public Use
  Company Number: US-ROCHE-2394261

PATIENT
  Age: 46 Year
  Sex: Female
  Weight: 65.83 kg

DRUGS (1)
  1. OCREVUS [Suspect]
     Active Substance: OCRELIZUMAB
     Indication: RELAPSING MULTIPLE SCLEROSIS
     Route: 042

REACTIONS (4)
  - Therapy cessation [Unknown]
  - Pharyngeal swelling [Recovered/Resolved]
  - Feeling abnormal [Unknown]
  - Ear pruritus [Recovered/Resolved]

NARRATIVE: CASE EVENT DATE: 201704
